FAERS Safety Report 8010580-5 (Version None)
Quarter: 2011Q4

REPORT INFORMATION
  Report Type: 
  Country: None (occurrence: None)
  Receive Date: 20111228
  Receipt Date: 20111221
  Transmission Date: 20120403
  Serious: Yes (Life-Threatening, Hospitalization, Disabling)
  Sender: FDA-Public Use
  Company Number: PHEH2011US008910

PATIENT
  Sex: Female
  Weight: 69 kg

DRUGS (13)
  1. FOLIC ACID [Concomitant]
     Dosage: 5 DF (1 MG), DAILY
     Route: 048
     Dates: start: 20101214
  2. MULTIVITAMINS, COMBINATIONS [Concomitant]
     Dosage: 1 DF, QD
     Route: 048
     Dates: start: 20101214
  3. WARFARIN [Concomitant]
     Dosage: 5 MG, QD
     Route: 048
     Dates: start: 20101214
  4. LYRICA [Concomitant]
     Dosage: 150 MG, BID
     Route: 048
     Dates: start: 20111006
  5. POTASSIUM CHLORIDE [Concomitant]
     Dosage: 10 MEQ, UNK
  6. AMBIEN [Concomitant]
     Dosage: 10 MG, UNK
     Dates: start: 20101214
  7. POTASSIUM CHLORIDE [Concomitant]
     Dosage: 20 MEQ, UNK
     Dates: start: 20110822
  8. MAGNESIUM [Concomitant]
     Dosage: 4 TABLETS (200 MG), DAILY
     Dates: start: 20101214
  9. AMILORIDE HCL AND HYDROCHLOROTHIAZIDE [Concomitant]
     Dosage: DF (5/50 MG), QD
     Dates: start: 20101214
  10. ACETAMINOPHEN AND HYDROCODONE BITARTRATE [Concomitant]
     Dosage: 1 DF (10/500 MG), AS NEEDED
     Route: 048
     Dates: start: 20101214
  11. ZOLOFT [Concomitant]
     Dosage: 1.5 DF (100 MG), DAILY
     Route: 048
     Dates: start: 20101214
  12. EXJADE [Suspect]
     Indication: IRON OVERLOAD
     Dosage: 2500 MG, DAILY
     Route: 048
     Dates: start: 20090723, end: 20111025
  13. DILTIAZEM HCL [Concomitant]
     Dosage: 240 MG, QD
     Dates: start: 20101214

REACTIONS (1)
  - CEREBRAL HAEMORRHAGE [None]
